FAERS Safety Report 5849199-0 (Version None)
Quarter: 2008Q3

REPORT INFORMATION
  Report Type: 
  Country: None (occurrence: None)
  Receive Date: 20080818
  Receipt Date: 20080818
  Transmission Date: 20090109
  Serious: Yes (Other)
  Sender: FDA-Public Use
  Company Number: None

PATIENT
  Age: 51 Year
  Sex: Female
  Weight: 74.8435 kg

DRUGS (1)
  1. CYMBALTA [Suspect]
     Indication: DEPRESSION
     Dosage: 1 CAPSUL 1 X DAILY PO
     Route: 048
     Dates: start: 20080529, end: 20080811

REACTIONS (5)
  - ANGER [None]
  - CRYING [None]
  - IMPAIRED WORK ABILITY [None]
  - NAUSEA [None]
  - TINNITUS [None]
